FAERS Safety Report 7949550-1 (Version None)
Quarter: 2011Q4

REPORT INFORMATION
  Report Type: 
  Country: None (occurrence: None)
  Receive Date: 20111130
  Receipt Date: 20111121
  Transmission Date: 20120403
  Serious: Yes (Death, Other)
  Sender: FDA-Public Use
  Company Number: GB-ROCHE-1014954

PATIENT
  Age: 70 Year
  Sex: Male
  Weight: 95 kg

DRUGS (6)
  1. ORLISTAT [Suspect]
     Dates: start: 20060103
  2. ORLISTAT [Suspect]
     Dates: start: 20080701, end: 20090201
  3. ORLISTAT [Suspect]
     Dates: start: 20070901, end: 20071101
  4. ORLISTAT [Suspect]
     Indication: OVERWEIGHT
     Route: 048
     Dates: start: 20090601, end: 20090801
  5. ORLISTAT [Suspect]
     Dates: end: 20070726
  6. ORLISTAT [Suspect]
     Dates: start: 20061023, end: 20070301

REACTIONS (1)
  - GALLBLADDER CANCER [None]
